FAERS Safety Report 5689808-2 (Version None)
Quarter: 2008Q1

REPORT INFORMATION
  Report Type: 
  Country: None (occurrence: None)
  Receive Date: 20080328
  Receipt Date: 20080318
  Transmission Date: 20080703
  Serious: Yes (Other)
  Sender: FDA-Public Use
  Company Number: 100#02#2008-01637

PATIENT
  Sex: Male

DRUGS (1)
  1. TRAMADOL                 50 MG CAPSULES (TRAMADOL) [Suspect]
     Indication: DRUG USE FOR UNKNOWN INDICATION
     Dosage: ORAL
     Route: 048

REACTIONS (2)
  - CONFUSIONAL STATE [None]
  - PARANOIA [None]
